FAERS Safety Report 14939935 (Version 1)
Quarter: 2018Q2

REPORT INFORMATION
  Report Type: Spontaneous
  Country: DE (occurrence: DE)
  Receive Date: 20180525
  Receipt Date: 20180525
  Transmission Date: 20180711
  Serious: Yes (Hospitalization)
  Sender: FDA-Public Use
  Company Number: DE-PFIZER INC-2018210414

PATIENT
  Age: 91 Year
  Sex: Female
  Weight: 55 kg

DRUGS (8)
  1. MARCUMAR [Concomitant]
     Active Substance: PHENPROCOUMON
     Dosage: ACCORDING TO PLAN
     Route: 048
  2. NIFEDIPIN [Concomitant]
     Active Substance: NIFEDIPINE
     Dosage: 10 MG, 0-0-1
  3. METAMIZOL /06276702/ [Concomitant]
     Active Substance: METAMIZOLE
     Dosage: 30-30-30, DROPS
     Route: 048
  4. FENTANYL. [Suspect]
     Active Substance: FENTANYL
     Dosage: 25 UG, EVERY 3 DAYS
     Route: 003
  5. CETIDEX [Concomitant]
     Dosage: 10 MG, 0-0-1
     Route: 048
  6. ALLOPURINOL. [Concomitant]
     Active Substance: ALLOPURINOL
     Dosage: 100 MG, 0-0-1
     Route: 048
  7. PANTOPRAZOL [Concomitant]
     Active Substance: PANTOPRAZOLE SODIUM
     Dosage: 20 MG, 0-0-1
     Route: 048
  8. METOPROLOL. [Concomitant]
     Active Substance: METOPROLOL
     Dosage: 47.5 MG, 1/2-0-1
     Route: 048

REACTIONS (3)
  - Accidental underdose [Unknown]
  - Drug prescribing error [Unknown]
  - Musculoskeletal pain [Unknown]

NARRATIVE: CASE EVENT DATE: 20161211
